FAERS Safety Report 4699969-X (Version None)
Quarter: 2005Q2

REPORT INFORMATION
  Report Type: 
  Country: None (occurrence: None)
  Receive Date: 20050623
  Receipt Date: 20050609
  Transmission Date: 20051028
  Serious: Yes (Hospitalization, Other)
  Sender: FDA-Public Use
  Company Number: 2005BI011335

PATIENT
  Age: 50 Year
  Sex: Female
  Weight: 113.3993 kg

DRUGS (3)
  1. AVONEX [Suspect]
     Indication: MULTIPLE SCLEROSIS
     Dosage: 30 UG;QW; IM
     Route: 030
     Dates: start: 19961001, end: 20030101
  2. AVONEX [Suspect]
     Indication: MULTIPLE SCLEROSIS
     Dosage: 30 UG;QW; IM
     Route: 030
     Dates: start: 20030101, end: 20041201
  3. AVONEX [Suspect]
     Indication: MULTIPLE SCLEROSIS
     Dosage: 30 UG;QW; IM
     Route: 030
     Dates: start: 20050301

REACTIONS (13)
  - CONDITION AGGRAVATED [None]
  - DYSPHONIA [None]
  - EYE PAIN [None]
  - FATIGUE [None]
  - INFLUENZA LIKE ILLNESS [None]
  - LUNG DISORDER [None]
  - MULTIPLE SCLEROSIS [None]
  - NEUROPATHY [None]
  - NEUROPATHY PERIPHERAL [None]
  - PAIN [None]
  - SYNCOPE [None]
  - TREMOR [None]
  - WEIGHT INCREASED [None]
